FAERS Safety Report 5516713-4 (Version None)
Quarter: 2007Q4

REPORT INFORMATION
  Report Type: 
  Country: None (occurrence: None)
  Receive Date: 20071114
  Receipt Date: 20070427
  Transmission Date: 20080405
  Serious: No
  Sender: FDA-Public Use
  Company Number: A0648835A

PATIENT
  Age: 59 Year
  Sex: Female

DRUGS (1)
  1. COMMIT [Suspect]
     Dates: start: 20070423

REACTIONS (2)
  - DRY MOUTH [None]
  - PHARYNGOLARYNGEAL PAIN [None]
